FAERS Safety Report 5339742-2 (Version None)
Quarter: 2007Q2

REPORT INFORMATION
  Report Type: 
  Country: None (occurrence: None)
  Receive Date: 20070404
  Receipt Date: 20061222
  Transmission Date: 20071010
  Serious: Yes (Hospitalization, Other)
  Sender: FDA-Public Use
  Company Number: 2006112083

PATIENT
  Age: 34 Year
  Sex: Male
  Weight: 62.1 kg

DRUGS (3)
  1. GEODON [Suspect]
     Indication: BIPOLAR DISORDER
     Dosage: 140 MG (2 IN 1 D)
     Dates: start: 20060306, end: 20060911
  2. DEPAKOTE [Suspect]
     Dosage: 500 MG (250 MG, 2 IN 1 D)
  3. METFORMIN HCL [Concomitant]

REACTIONS (2)
  - ERECTILE DYSFUNCTION [None]
  - PRIAPISM [None]
